FAERS Safety Report 5141102-4 (Version None)
Quarter: 2006Q4

REPORT INFORMATION
  Report Type: 
  Country: None (occurrence: None)
  Receive Date: 20061101
  Receipt Date: 20061025
  Transmission Date: 20070319
  Serious: Yes (Death, Life-Threatening, Disabling, Other)
  Sender: FDA-Public Use
  Company Number: GB-ELI_LILLY_AND_COMPANY-GB200610004583

PATIENT
  Age: 44 Year
  Sex: Male
  Weight: 80 kg

DRUGS (5)
  1. ZYPREXA [Suspect]
     Dosage: 20 MG, UNK
     Route: 048
     Dates: start: 20050701
  2. METHADONE HCL [Concomitant]
     Dosage: 20 MG, 4/D
     Route: 048
     Dates: start: 20060510
  3. DIAZEPAM [Concomitant]
     Dosage: 20 MG, UNK
     Route: 048
  4. GABAPENTIN [Concomitant]
     Dosage: 900 MG, UNK
     Route: 048
     Dates: start: 20060330
  5. ZOPICLONE [Concomitant]
     Dosage: 15 MG, UNK
     Route: 048
     Dates: start: 20050101

REACTIONS (2)
  - ARRHYTHMIA [None]
  - CELLULITIS [None]
